FAERS Safety Report 19003840 (Version 2)
Quarter: 2021Q1

REPORT INFORMATION
  Report Type: Report from Study
  Country: US (occurrence: US)
  Receive Date: 20210312
  Receipt Date: 20210323
  Transmission Date: 20210420
  Serious: Yes (Other)
  Sender: FDA-Public Use
  Company Number: US-BAUSCH-BL-2021-008880

PATIENT
  Age: 86 Year
  Sex: Male

DRUGS (2)
  1. XIFAXAN [Suspect]
     Active Substance: RIFAXIMIN
     Dosage: DOSAGE CHANGED
     Route: 048
  2. XIFAXAN [Suspect]
     Active Substance: RIFAXIMIN
     Indication: PRODUCT USED FOR UNKNOWN INDICATION
     Dosage: HAD BEEN ON MEDICATION FOR 2 YEARS
     Route: 048
     Dates: start: 2019

REACTIONS (4)
  - Inability to afford medication [Unknown]
  - Sleep apnoea syndrome [Not Recovered/Not Resolved]
  - Insurance issue [Unknown]
  - Cardiac valve prosthesis user [Not Recovered/Not Resolved]

NARRATIVE: CASE EVENT DATE: 202011
